FAERS Safety Report 16061479 (Version 1)
Quarter: 2019Q2

REPORT INFORMATION
  Report Type: Spontaneous
  Country: US (occurrence: US)
  Receive Date: 20190312
  Receipt Date: 20190312
  Transmission Date: 20190711
  Serious: Yes (Life-Threatening, Hospitalization, Disabling)
  Sender: FDA-Public Use
  Company Number: None

PATIENT
  Age: 68 Year
  Sex: Male
  Weight: 73.1 kg

DRUGS (6)
  1. APIXABAN [Suspect]
     Active Substance: APIXABAN
     Indication: ATRIAL FIBRILLATION
     Route: 048
  2. PRAVASTATIN 20 MG PO QD [Concomitant]
  3. BENZONATATE 100 MG PO TID PRN [Concomitant]
  4. CENTRUM SILVER ORAL 1 TAB PO QD [Concomitant]
  5. AMLODIPINE 5 MG PO QD [Concomitant]
  6. PROPAFENONE SR 325 MG PO BID [Concomitant]

REACTIONS (1)
  - Haemorrhage intracranial [None]

NARRATIVE: CASE EVENT DATE: 20190311
